FAERS Safety Report 24882501 (Version 1)
Quarter: 2025Q1

REPORT INFORMATION
  Report Type: Report from Study
  Country: PK (occurrence: PK)
  Receive Date: 20250124
  Receipt Date: 20250124
  Transmission Date: 20250408
  Serious: Yes (Other)
  Sender: ROCHE
  Company Number: PK-ROCHE-3289471

PATIENT
  Age: 30 Year
  Sex: Female

DRUGS (4)
  1. OCREVUS [Suspect]
     Active Substance: OCRELIZUMAB
     Indication: Relapsing-remitting multiple sclerosis
     Dosage: THEN 600 MG ONCE EVERY 6 MONTHS.
     Route: 042
     Dates: start: 20230211
  2. OCREVUS [Suspect]
     Active Substance: OCRELIZUMAB
     Route: 042
     Dates: start: 20231206
  3. LIORESAL [Concomitant]
     Active Substance: BACLOFEN
     Route: 048
  4. FEFOL [FERROUS SULFATE EXSICCATED;FOLIC ACID] [Concomitant]

REACTIONS (9)
  - Maternal exposure before pregnancy [Unknown]
  - Maternal exposure during breast feeding [Unknown]
  - Gait disturbance [Unknown]
  - Disability [Unknown]
  - Ataxia [Unknown]
  - Affect lability [Unknown]
  - Aggression [Unknown]
  - Vertigo [Unknown]
  - Urge incontinence [Unknown]

NARRATIVE: CASE EVENT DATE: 20250109
